FAERS Safety Report 4632692-6 (Version None)
Quarter: 2005Q2

REPORT INFORMATION
  Report Type: 
  Country: None (occurrence: None)
  Receive Date: 20050412
  Receipt Date: 20050331
  Transmission Date: 20051028
  Serious: Yes (Hospitalization)
  Sender: FDA-Public Use
  Company Number: US-JNJFOC-20050400587

PATIENT
  Sex: Female
  Weight: 74.84 kg

DRUGS (12)
  1. INFLIXIMAB [Suspect]
     Indication: RHEUMATOID ARTHRITIS
     Route: 042
  2. THYROID TAB [Concomitant]
  3. FOLIC ACID [Concomitant]
  4. PAXIL [Concomitant]
  5. PREDNISONE [Concomitant]
  6. METHOTREXATE [Concomitant]
  7. FOSAMAX [Concomitant]
  8. PROTONIX [Concomitant]
  9. CALCIUM GLUCONATE [Concomitant]
  10. VITAMIN D [Concomitant]
  11. BIOTIN [Concomitant]
  12. B12 [Concomitant]

REACTIONS (1)
  - DERMATITIS PSORIASIFORM [None]
